FAERS Safety Report 15458700 (Version 1)
Quarter: 2018Q4

REPORT INFORMATION
  Report Type: Spontaneous
  Country: US (occurrence: US)
  Receive Date: 20181001
  Receipt Date: 20181001
  Transmission Date: 20190204
  Serious: No
  Sender: FDA-Public Use
  Company Number: None

PATIENT
  Age: 58 Year
  Sex: Male
  Weight: 65.32 kg

DRUGS (2)
  1. PRIME ASTHMA RELIEF [Suspect]
     Active Substance: EPINEPHRINE
  2. PRIME ASTHMA RELIEF [Suspect]
     Active Substance: EPINEPHRINE

REACTIONS (2)
  - Product packaging issue [None]
  - Product expiration date issue [None]

NARRATIVE: CASE EVENT DATE: 20180909
